FAERS Safety Report 9688318 (Version 1)
Quarter: 2013Q4

REPORT INFORMATION
  Report Type: Spontaneous
  Country: US (occurrence: None)
  Receive Date: 20131113
  Receipt Date: 20131113
  Transmission Date: 20140711
  Serious: Yes (Hospitalization)
  Sender: FDA-Public Use
  Company Number: None

PATIENT
  Age: 61 Year
  Sex: Female

DRUGS (5)
  1. ERIVEDGE [Suspect]
     Indication: BASAL CELL CARCINOMA
     Route: 048
     Dates: start: 20130909, end: 20131003
  2. BONIVIA [Concomitant]
  3. MULTIVITAMIN [Concomitant]
  4. VITAMIN C [Concomitant]
  5. B12 [Concomitant]

REACTIONS (6)
  - Ageusia [None]
  - Muscle spasms [None]
  - Colitis ischaemic [None]
  - Constipation [None]
  - Alopecia [None]
  - Product quality issue [None]
